FAERS Safety Report 18344936 (Version 1)
Quarter: 2020Q4

REPORT INFORMATION
  Report Type: Spontaneous
  Country: GB (occurrence: GB)
  Receive Date: 20201005
  Receipt Date: 20201005
  Transmission Date: 20210114
  Serious: Yes (Life-Threatening, Other)
  Sender: FDA-Public Use
  Company Number: GB-B.I. PHARMACEUTICALS,INC./RIDGEFIELD-2020-BI-052451

PATIENT
  Age: 13 Year
  Sex: Female
  Weight: 67 kg

DRUGS (1)
  1. CATAPRES [Suspect]
     Active Substance: CLONIDINE HYDROCHLORIDE
     Indication: PAIN
     Route: 048

REACTIONS (1)
  - Suicidal ideation [Recovered/Resolved]
